FAERS Safety Report 15015556 (Version 5)
Quarter: 2019Q1

REPORT INFORMATION
  Report Type: Spontaneous
  Country: CA (occurrence: CA)
  Receive Date: 20180615
  Receipt Date: 20190122
  Transmission Date: 20190417
  Serious: Yes (Other)
  Sender: FDA-Public Use
  Company Number: CA-CELLTRION INC.-2018CA020121

PATIENT

DRUGS (14)
  1. INFLECTRA [Suspect]
     Active Substance: INFLIXIMAB-DYYB
     Dosage: 900 MG (EVERY 2,6 WEEKS, THEN EVERY 8 WEEKS)
     Route: 042
     Dates: start: 20190114
  2. VITAMIN D [Concomitant]
     Active Substance: CHOLECALCIFEROL
     Dosage: UNK
  3. CITALOPRAM [Concomitant]
     Active Substance: CITALOPRAM HYDROBROMIDE
     Dosage: UNK
  4. INFLECTRA [Suspect]
     Active Substance: INFLIXIMAB-DYYB
     Indication: CROHN^S DISEASE
     Dosage: 900  MG/Q (EVERY) 2,6 WEEKS, THEN EVERY 8 WEEKS
     Route: 042
     Dates: start: 20180426
  5. INFLECTRA [Suspect]
     Active Substance: INFLIXIMAB-DYYB
     Dosage: 900 MG (EVERY 2,6   WEEKS, THEN EVERY 8 WEEKS)
     Route: 042
     Dates: start: 20181119
  6. CALCIUM [Concomitant]
     Active Substance: CALCIUM
     Dosage: UNK
  7. INFLECTRA [Suspect]
     Active Substance: INFLIXIMAB-DYYB
     Dosage: 900  MG/Q (EVERY) 2,6   WEEKS, THEN EVERY 8 WEEKS
     Route: 042
     Dates: start: 20180508
  8. INFLECTRA [Suspect]
     Active Substance: INFLIXIMAB-DYYB
     Dosage: 900  MG (EVERY 2,6   WEEKS, THEN EVERY 8 WEEKS)
     Route: 042
     Dates: start: 20180731
  9. PREDNISONE. [Concomitant]
     Active Substance: PREDNISONE
     Dosage: UNK
  10. FERAMAX [Concomitant]
     Active Substance: IRON\POLYSACCHARIDES
     Dosage: UNK
  11. INFLECTRA [Suspect]
     Active Substance: INFLIXIMAB-DYYB
     Dosage: 900 MG (EVERY 2,6   WEEKS, THEN EVERY 8 WEEKS)
     Route: 042
     Dates: start: 20180924
  12. SOLU-CORTEF [Concomitant]
     Active Substance: HYDROCORTISONE SODIUM SUCCINATE
     Dosage: UNK
     Dates: start: 20180420
  13. INFLECTRA [Suspect]
     Active Substance: INFLIXIMAB-DYYB
     Dosage: 900  MG (EVERY 2,6   WEEKS, THEN EVERY 8 WEEKS)
     Route: 065
     Dates: start: 20180606
  14. INFLECTRA [Suspect]
     Active Substance: INFLIXIMAB-DYYB
     Dosage: 900  MG (EVERY 2,6   WEEKS, THEN EVERY 8 WEEKS)
     Route: 042
     Dates: start: 20180731

REACTIONS (8)
  - Subcutaneous abscess [Unknown]
  - Product use issue [Unknown]
  - Blood pressure fluctuation [Unknown]
  - Acne [Not Recovered/Not Resolved]
  - Fatigue [Not Recovered/Not Resolved]
  - Condition aggravated [Recovering/Resolving]
  - Pruritus [Recovered/Resolved]
  - Blood pressure fluctuation [Unknown]

NARRATIVE: CASE EVENT DATE: 20180508
